FAERS Safety Report 8371051-X (Version None)
Quarter: 2012Q2

REPORT INFORMATION
  Report Type: 
  Country: None (occurrence: None)
  Receive Date: 20120518
  Receipt Date: 20120508
  Transmission Date: 20120825
  Serious: Yes (Other)
  Sender: FDA-Public Use
  Company Number: US-BRISTOL-MYERS SQUIBB COMPANY-16601767

PATIENT
  Age: 40 Year
  Sex: Male

DRUGS (3)
  1. BETAMETHASONE [Suspect]
     Dosage: 1 DF = 9MG BETAMETHASONE /2% LIDOCAINE, 1 ML
  2. LIDOCAINE [Suspect]
     Dosage: 1 DF = 9MG BETAMETHASONE /2% LIDOCAINE, 1 ML + 60 MG TRIAMCINOLONE IN 2 % LIDOCAINE
  3. TRIAMCINOLONE ACETONIDE [Suspect]
     Dosage: 60 MG TRIAMCINOLONE IN 2 % LIDOCAINE

REACTIONS (1)
  - HICCUPS [None]
